FAERS Safety Report 24353562 (Version 2)
Quarter: 2024Q3

REPORT INFORMATION
  Report Type: Spontaneous
  Country: US (occurrence: US)
  Receive Date: 20240923
  Receipt Date: 20240927
  Transmission Date: 20241017
  Serious: No
  Sender: PFIZER
  Company Number: US-PFIZER INC-PV202300130908

PATIENT
  Sex: Male
  Weight: 45.805 kg

DRUGS (2)
  1. OXBRYTA [Suspect]
     Active Substance: VOXELOTOR
     Dosage: 1500 MG, DAILY
     Route: 048
     Dates: start: 2018
  2. HYDROXYUREA [Concomitant]
     Active Substance: HYDROXYUREA
     Indication: Sickle cell disease
     Dosage: 10 ML, DAILY

REACTIONS (2)
  - Product use complaint [Recovered/Resolved]
  - Vomiting [Recovered/Resolved]
